FAERS Safety Report 23856550 (Version 2)
Quarter: 2024Q2

REPORT INFORMATION
  Report Type: Spontaneous
  Country: LV (occurrence: LV)
  Receive Date: 20240515
  Receipt Date: 20240617
  Transmission Date: 20240716
  Serious: No
  Sender: FDA-Public Use
  Company Number: LV-GSK-LV2024EME058203

PATIENT

DRUGS (1)
  1. SERETIDE [Suspect]
     Active Substance: FLUTICASONE PROPIONATE\SALMETEROL XINAFOATE
     Indication: Product used for unknown indication
     Dosage: UNK,25/250MCG, 120 DOSES

REACTIONS (2)
  - Incorrect dose administered [Unknown]
  - Product complaint [Unknown]
